FAERS Safety Report 4874804-5 (Version None)
Quarter: 2006Q1

REPORT INFORMATION
  Report Type: 
  Country: None (occurrence: None)
  Receive Date: 20060104
  Receipt Date: 20051220
  Transmission Date: 20060701
  Serious: Yes (Life-Threatening)
  Sender: FDA-Public Use
  Company Number: S05-CAN-03868-01

PATIENT
  Age: 78 Year
  Sex: Male

DRUGS (19)
  1. CELEXA [Suspect]
     Indication: DEPRESSION
     Dosage: 10 MG QD PO
     Route: 048
     Dates: start: 20050923, end: 20050925
  2. OLANZAPINE [Suspect]
     Dosage: 2.5 MG QHS PO
     Route: 048
     Dates: start: 20050923, end: 20050925
  3. DIGOXINE (DIGOXIN) (DIGOXINE) [Concomitant]
  4. FUROSEMIDE [Concomitant]
  5. DOCUSATE SODIUM [Concomitant]
  6. SENNOSIDES (SENNOSIDE A+B CALCIUM) [Concomitant]
  7. METROPROLOL [Concomitant]
  8. POTASSIUM CHLORIDE [Concomitant]
  9. IPRATROPIUM/SALBUTAMOL 10/120 MG (SALBUTAMOL W/IPRATROPIUM) [Concomitant]
  10. ACETAMINOPHEN (PARACETAMOL) (ACETAMINOPHEN) [Concomitant]
  11. SODIUM PHOSPHATES (SODIUM PHOSPHATE (32 P) [Concomitant]
  12. CELECOXIB [Concomitant]
  13. CEFUROXIME [Concomitant]
  14. LORAZEPAM [Concomitant]
  15. FERROUS SULFATE TAB [Concomitant]
  16. DILTIAZEM HCL [Concomitant]
  17. PANTOPRAZOLE [Concomitant]
  18. MULTIVITAMIN [Concomitant]
  19. INSULIN SCALE (INSULIN) [Concomitant]

REACTIONS (5)
  - ANAEMIA [None]
  - CONFUSIONAL STATE [None]
  - FALL [None]
  - HEPATORENAL FAILURE [None]
  - HYPOVOLAEMIC SHOCK [None]
